FAERS Safety Report 5133973-2 (Version None)
Quarter: 2006Q4

REPORT INFORMATION
  Report Type: 
  Country: None (occurrence: None)
  Receive Date: 20061018
  Receipt Date: 20061009
  Transmission Date: 20070319
  Serious: Yes (Other)
  Sender: FDA-Public Use
  Company Number: 2006123706

PATIENT
  Age: 65 Year
  Sex: Female
  Weight: 73.0291 kg

DRUGS (2)
  1. UNISOM NIGHTTIME SLEEP AND TABLETS (DOXYLAMINE SUCCINATE) [Suspect]
     Indication: SLEEP DISORDER
     Dosage: ONE TABLET ONCE, ORAL
     Route: 048
     Dates: start: 20061008, end: 20061008
  2. INSULIN LISPRO (INSULIN LISPRO) [Concomitant]

REACTIONS (6)
  - AMNESIA [None]
  - BLOOD GLUCOSE FLUCTUATION [None]
  - DISORIENTATION [None]
  - FEELING ABNORMAL [None]
  - LETHARGY [None]
  - VISUAL DISTURBANCE [None]
